FAERS Safety Report 13759089 (Version 7)
Quarter: 2017Q3

REPORT INFORMATION
  Report Type: Spontaneous
  Country: KR (occurrence: KR)
  Receive Date: 20170717
  Receipt Date: 20170831
  Transmission Date: 20171127
  Serious: Yes (Death, Hospitalization, Other)
  Sender: FDA-Public Use
  Company Number: KR-009507513-1704KOR010041

PATIENT
  Age: 77 Year
  Sex: Female
  Weight: 50.9 kg

DRUGS (31)
  1. ENDOXAN [Concomitant]
     Active Substance: CYCLOPHOSPHAMIDE
     Indication: CHEMOTHERAPY
     Dosage: 750 MG, ONCE, CYCLE 1
     Route: 042
     Dates: start: 20160414, end: 20160414
  2. DEXAMETHASONE SODIUM PHOSPHATE. [Concomitant]
     Active Substance: DEXAMETHASONE SODIUM PHOSPHATE
     Indication: ANTIEMETIC SUPPORTIVE CARE
     Dosage: 40 MG, QD, STRENGTH: 5 MG/ML
     Route: 042
     Dates: start: 20160411, end: 20160414
  3. MUCOPECT [Concomitant]
     Indication: PROPHYLAXIS
     Dosage: 1 TABLET, TID
     Route: 048
     Dates: start: 20160411
  4. PLAVIX [Concomitant]
     Active Substance: CLOPIDOGREL BISULFATE
     Indication: CEREBROVASCULAR ACCIDENT
     Dosage: 1 TABLET, QD
     Route: 048
  5. CHOLINE ALFOSCERATE [Concomitant]
     Active Substance: CHOLINE ALFOSCERATE
     Indication: CEREBROVASCULAR ACCIDENT
     Dosage: 400 MG, QD
     Route: 048
  6. MEGACE F [Concomitant]
     Indication: PROPHYLAXIS
     Dosage: 5 ML, QD; FORMULATION: SUSPENSION
     Route: 048
     Dates: start: 20160411, end: 20160505
  7. MUCOSTA [Concomitant]
     Active Substance: REBAMIPIDE
     Indication: PROPHYLAXIS
     Dosage: 1 TABLET, QD
     Route: 048
     Dates: start: 20160406
  8. ALOXI [Concomitant]
     Active Substance: PALONOSETRON HYDROCHLORIDE
     Indication: ANTIEMETIC SUPPORTIVE CARE
     Dosage: 0.25 MG, ONCE
     Route: 042
     Dates: start: 20160414, end: 20160414
  9. LASIX [Concomitant]
     Active Substance: FUROSEMIDE
     Indication: PROPHYLAXIS
     Dosage: 20 MG, BID
     Route: 048
     Dates: start: 20160416, end: 20160417
  10. PANTOLINE TABLETS [Concomitant]
     Indication: PROPHYLAXIS
     Dosage: 1 TABLET, QD
     Route: 048
     Dates: start: 20160411
  11. EMEND (FOSAPREPITANT DIMEGLUMINE) [Suspect]
     Active Substance: FOSAPREPITANT DIMEGLUMINE
     Indication: PROPHYLAXIS OF NAUSEA AND VOMITING
     Dosage: 150 MG, ONCE
     Route: 042
     Dates: start: 20160414, end: 20160414
  12. VINCRAN V [Concomitant]
     Dosage: 1.2 MG, ONCE, CYCLE 2
     Route: 042
     Dates: start: 20160513, end: 20160513
  13. CODAEWON FORTE [Concomitant]
     Indication: PROPHYLAXIS
     Dosage: 20 ML, TID
     Route: 048
     Dates: start: 20160412, end: 20160502
  14. LANTUS [Concomitant]
     Active Substance: INSULIN GLARGINE
     Indication: DIABETES MELLITUS
     Dosage: 8 IU, QD, STRENGTH:100 IU/ML
     Route: 058
  15. VINCRAN V [Concomitant]
     Indication: CHEMOTHERAPY
     Dosage: 1.4 MG, ONCE, CYCLE 1
     Route: 042
     Dates: start: 20160414, end: 20160414
  16. MUTERAN [Concomitant]
     Active Substance: ACETYLCYSTEINE
     Dosage: 3 CAPSULES, BID
     Route: 048
     Dates: start: 20160524
  17. ALOXI [Concomitant]
     Active Substance: PALONOSETRON HYDROCHLORIDE
     Dosage: 0.25 MG, ONCE
     Route: 042
     Dates: start: 20160513, end: 20160513
  18. NEULASTA [Concomitant]
     Active Substance: PEGFILGRASTIM
     Indication: PROPHYLAXIS
     Dosage: 6 MG, ONCE; FORMULATION: PREFILLED SYRINGE
     Route: 058
     Dates: start: 20160416, end: 20160416
  19. ASPIRIN. [Concomitant]
     Active Substance: ASPIRIN
     Indication: CEREBROVASCULAR ACCIDENT
     Dosage: 1 CAPSULE, QD; ENTERIC COATED
     Route: 048
  20. EMEND (FOSAPREPITANT DIMEGLUMINE) [Suspect]
     Active Substance: FOSAPREPITANT DIMEGLUMINE
     Dosage: 150 MG, ONCE
     Route: 042
     Dates: start: 20160513, end: 20160513
  21. ADRIAMYCIN [Concomitant]
     Active Substance: DOXORUBICIN HYDROCHLORIDE
     Dosage: 43 MG, ONCE, CYCLE 2
     Route: 042
     Dates: start: 20160513, end: 20160513
  22. ENDOXAN [Concomitant]
     Active Substance: CYCLOPHOSPHAMIDE
     Dosage: 650 MG, ONCE, CYCLE 2
     Route: 042
     Dates: start: 20160513, end: 20160513
  23. DEXAMETHASONE SODIUM PHOSPHATE. [Concomitant]
     Active Substance: DEXAMETHASONE SODIUM PHOSPHATE
     Dosage: 5 MG, QD
     Route: 042
     Dates: start: 20160416, end: 20160417
  24. MUTERAN [Concomitant]
     Active Substance: ACETYLCYSTEINE
     Indication: PROPHYLAXIS
     Dosage: 3 CAPSULES, BID
     Route: 048
     Dates: start: 20160406, end: 20160408
  25. LIPITOR [Concomitant]
     Active Substance: ATORVASTATIN CALCIUM
     Indication: CEREBROVASCULAR ACCIDENT
     Dosage: 1 TABLET, QD
     Route: 048
  26. LASIX [Concomitant]
     Active Substance: FUROSEMIDE
     Dosage: 20 MG, BID
     Route: 048
     Dates: start: 20160526, end: 20160527
  27. ADRIAMYCIN [Concomitant]
     Active Substance: DOXORUBICIN HYDROCHLORIDE
     Indication: CHEMOTHERAPY
     Dosage: 50 MG, ONCE, CYCLE 1
     Route: 042
     Dates: start: 20160415, end: 20160415
  28. DEXAMETHASONE SODIUM PHOSPHATE. [Concomitant]
     Active Substance: DEXAMETHASONE SODIUM PHOSPHATE
     Dosage: 40 MG, QD
     Route: 042
     Dates: start: 20160513, end: 20160513
  29. PMS NYSTATIN [Concomitant]
     Indication: PROPHYLAXIS
     Dosage: 5 ML, TID; STRENGTH: 100 KIU/ML
     Route: 048
     Dates: start: 20160413, end: 20160502
  30. NEULASTA [Concomitant]
     Active Substance: PEGFILGRASTIM
     Dosage: 6 MG, ONCE; FORMULATION: PREFILLED SYRINGE
     Route: 058
     Dates: start: 20160514, end: 20160514
  31. NOVORAPID [Concomitant]
     Active Substance: INSULIN ASPART
     Indication: DIABETES MELLITUS
     Dosage: 8 IU, TID, FLEXPEN STRENGTH: 100 IU/ML
     Route: 058

REACTIONS (9)
  - Peripheral T-cell lymphoma unspecified [Not Recovered/Not Resolved]
  - Dyspnoea [Not Recovered/Not Resolved]
  - Hyperhidrosis [Not Recovered/Not Resolved]
  - Thrombocytopenia [Recovered/Resolved]
  - Asthenia [Not Recovered/Not Resolved]
  - Pneumonia [Fatal]
  - Abdominal distension [Not Recovered/Not Resolved]
  - Neutropenia [Recovered/Resolved]
  - White blood cell count abnormal [Recovered/Resolved]

NARRATIVE: CASE EVENT DATE: 20160417
